FAERS Safety Report 5248110-3 (Version None)
Quarter: 2007Q1

REPORT INFORMATION
  Report Type: 
  Country: None (occurrence: None)
  Receive Date: 20070227
  Receipt Date: 20070226
  Transmission Date: 20070707
  Serious: Yes (Death)
  Sender: FDA-Public Use
  Company Number: IT-BRISTOL-MYERS SQUIBB COMPANY-13685482

PATIENT
  Sex: Female

DRUGS (2)
  1. ABILIFY [Suspect]
     Route: 048
     Dates: start: 20070206
  2. ACETAMINOPHEN [Suspect]

REACTIONS (8)
  - DIARRHOEA [None]
  - HYPERGLYCAEMIA [None]
  - HYPOTENSION [None]
  - INFLUENZA [None]
  - PULMONARY INFARCTION [None]
  - PYREXIA [None]
  - VIRAL MYOCARDITIS [None]
  - VOMITING [None]
